FAERS Safety Report 5755383-7 (Version None)
Quarter: 2008Q2

REPORT INFORMATION
  Report Type: 
  Country: None (occurrence: None)
  Receive Date: 20080602
  Receipt Date: 20080521
  Transmission Date: 20081010
  Serious: Yes (Other)
  Sender: FDA-Public Use
  Company Number: BR-ROCHE-565934

PATIENT
  Age: 44 Year
  Sex: Female
  Weight: 68 kg

DRUGS (5)
  1. RIVOTRIL [Suspect]
     Indication: PANIC REACTION
     Dosage: FORM REPORTED AS TABLET (NOS).
     Route: 048
     Dates: start: 19980101, end: 20030101
  2. MEGESTAT [Concomitant]
  3. 1 CONCOMITANT DRUG [Concomitant]
     Dosage: DRUG NAME REPORTED AS: VITERGAN (POLYVITAMINIC)
  4. VITAMIN B COMPLEX CAP [Concomitant]
  5. RIVOTRIL [Suspect]
     Route: 048
     Dates: start: 20030101

REACTIONS (2)
  - NO THERAPEUTIC RESPONSE [None]
  - OVARIAN NEOPLASM [None]
